FAERS Safety Report 16680201 (Version 2)
Quarter: 2019Q3

REPORT INFORMATION
  Report Type: Spontaneous
  Country: JP (occurrence: JP)
  Receive Date: 20190807
  Receipt Date: 20190826
  Transmission Date: 20191004
  Serious: Yes (Hospitalization)
  Sender: FDA-Public Use
  Company Number: PHHY2019JP181511

PATIENT
  Age: 27 Year
  Sex: Female

DRUGS (1)
  1. IMUSERA [Suspect]
     Active Substance: FINGOLIMOD HYDROCHLORIDE
     Indication: RELAPSING-REMITTING MULTIPLE SCLEROSIS
     Dosage: 0.5 MG, QD
     Route: 048

REACTIONS (3)
  - Lymphopenia [Recovered/Resolved]
  - Headache [Unknown]
  - Extradural haematoma [Recovered/Resolved]
